FAERS Safety Report 6635755-9 (Version None)
Quarter: 2010Q1

REPORT INFORMATION
  Report Type: 
  Country: None (occurrence: None)
  Receive Date: 20100310
  Receipt Date: 20100222
  Transmission Date: 20100710
  Serious: Yes (Hospitalization, Other)
  Sender: FDA-Public Use
  Company Number: AUR-APL-2010-00653

PATIENT
  Age: 45 Year
  Sex: Male
  Weight: 66 kg

DRUGS (10)
  1. DIDANOSINE [Suspect]
     Indication: HIV INFECTION
     Dates: start: 19991101
  2. STAVUDINE [Suspect]
     Indication: HIV INFECTION
     Dates: start: 19991101, end: 20010701
  3. ZIDOVUDINE [Suspect]
     Indication: HIV INFECTION
     Dates: start: 20010701
  4. ABACAVIR [Suspect]
     Indication: HIV INFECTION
     Dates: start: 20031001
  5. INDINAVIR [Suspect]
     Indication: HIV INFECTION
     Dates: start: 20020201
  6. LAMIVUDINE [Suspect]
     Indication: HIV INFECTION
     Dates: start: 20031001
  7. LOPINAVIR [Suspect]
     Indication: HIV INFECTION
     Dates: start: 20040701
  8. NELFINAVIR MESYLATE [Suspect]
     Indication: HIV INFECTION
     Dates: start: 19991101
  9. RITONAVIR [Suspect]
     Indication: HIV INFECTION
     Dates: start: 20031001
  10. SAQUINAVIR [Suspect]
     Indication: HIV INFECTION
     Dates: start: 20031001

REACTIONS (3)
  - LIPODYSTROPHY ACQUIRED [None]
  - OSTEONECROSIS [None]
  - PULMONARY TUBERCULOSIS [None]
